FAERS Safety Report 26101701 (Version 1)
Quarter: 2025Q4

REPORT INFORMATION
  Report Type: Report from Study
  Country: EU (occurrence: EU)
  Receive Date: 20251128
  Receipt Date: 20251128
  Transmission Date: 20260118
  Serious: Yes (Hospitalization)
  Sender: ORGANON
  Company Number: None

PATIENT
  Age: 74 Year
  Sex: Male

DRUGS (11)
  1. CARBIDOPA\LEVODOPA [Interacting]
     Active Substance: CARBIDOPA\LEVODOPA
     Dosage: 1 TABLET / 24 H - VIA ORAL (PROLONGED-RELEASE TABLET)
     Dates: start: 20230126, end: 20250821
  2. HALOPERIDOL [Interacting]
     Active Substance: HALOPERIDOL
     Dosage: 15 DROPS / 24 H - ORAL ROUTE SOLUTION/SUSPENSION ORAL DROPS 30 ML 1 BOTTLE
     Dates: start: 20250725, end: 20250821
  3. TAPENTADOL [Interacting]
     Active Substance: TAPENTADOL
     Dosage: 1 TABLET / 8 H - ORALLY (30 TABLET)
     Dates: start: 20250813, end: 20250821
  4. FENTANYL TRANSDERMAL SYSTEM [Interacting]
     Active Substance: FENTANYL
     Dosage: 1 PATCH / 72 H - TRANSDERMAL ROUTE (STRENGTH 25 MICROGRAMS/H 5 TRANSDERMAL PATCHES)
     Dates: start: 20250814, end: 20251103
  5. VORTIOXETINE [Interacting]
     Active Substance: VORTIOXETINE
     Dosage: 1 TABLET / 24 H - VIA ORAL(28 TABLET)
     Dates: start: 20250625, end: 20251103
  6. Bisoprolol 2.5 mg 28 tablets [Concomitant]
     Dosage: 0.5 TABLET / 24 H - ORALLY (28 TABLET)
     Dates: start: 20250604, end: 20251103
  7. FUROSEMIDE [Concomitant]
     Active Substance: FUROSEMIDE
     Dosage: 3 TABLETS / 24 H - ORALLY (30 TABLET
     Dates: start: 20250512, end: 20251103
  8. Ramipril 2.5 mg 28 tablets [Concomitant]
     Dosage: 1 TABLETS / 24 H - ORALL (28 TABLET)
     Dates: start: 20250512, end: 20251103
  9. tamsulosin + solifenacin [Concomitant]
     Dosage: TABLET / 24 H - ORAL ROUTE
     Dates: start: 20250512, end: 20251103
  10. Acetylsalicylic acid 100 mg 30 tablets [Concomitant]
     Dosage: 1/24 HOUR
     Dates: start: 20191212
  11. TICAGRELOR [Concomitant]
     Active Substance: TICAGRELOR
     Dosage: 1/24 HORAS (56 TABLET)
     Dates: start: 20250502

REACTIONS (3)
  - Cachexia [Unknown]
  - Vomiting [Unknown]
  - Drug interaction [Unknown]

NARRATIVE: CASE EVENT DATE: 20250720
